FAERS Safety Report 7511097-4 (Version None)
Quarter: 2011Q2

REPORT INFORMATION
  Report Type: 
  Country: None (occurrence: None)
  Receive Date: 20110519
  Receipt Date: 20110125
  Transmission Date: 20111010
  Serious: Yes (Death)
  Sender: FDA-Public Use
  Company Number: 2011MZ000015

PATIENT
  Age: 20 Year
  Sex: Male
  Weight: 35 kg

DRUGS (1)
  1. XEOMIN [Suspect]
     Indication: QUADRIPLEGIA
     Dosage: 400 IU
     Dates: start: 20110105, end: 20110105

REACTIONS (3)
  - NAUSEA [None]
  - VOMITING [None]
  - SUDDEN DEATH [None]
